FAERS Safety Report 18796091 (Version 1)
Quarter: 2021Q1

REPORT INFORMATION
  Report Type: Report from Study
  Country: EG (occurrence: EG)
  Receive Date: 20210127
  Receipt Date: 20210127
  Transmission Date: 20210419
  Serious: Yes (Other)
  Sender: FDA-Public Use
  Company Number: NVSC2021EG013045

PATIENT
  Age: 30 Year
  Sex: Female

DRUGS (1)
  1. GILENYA [Suspect]
     Active Substance: FINGOLIMOD HYDROCHLORIDE
     Indication: MULTIPLE SCLEROSIS
     Dosage: 0.5 MG, QD
     Route: 048
     Dates: start: 202006

REACTIONS (3)
  - Immunodeficiency [Not Recovered/Not Resolved]
  - Papule [Not Recovered/Not Resolved]
  - Subcutaneous abscess [Not Recovered/Not Resolved]

NARRATIVE: CASE EVENT DATE: 202010
